FAERS Safety Report 4726377-5 (Version None)
Quarter: 2005Q3

REPORT INFORMATION
  Report Type: 
  Country: None (occurrence: None)
  Receive Date: 20050727
  Receipt Date: 20050717
  Transmission Date: 20060218
  Serious: Yes (Other)
  Sender: FDA-Public Use
  Company Number: 2005096796

PATIENT
  Age: 47 Year
  Sex: Female
  Weight: 40.8237 kg

DRUGS (2)
  1. BENADRYL [Suspect]
     Indication: SINUS CONGESTION
     Dosage: 1 TAB THURS, 1/2 TAB FRI, 1/4 TAB SAT, ORAL
     Route: 048
     Dates: start: 20050623, end: 20050625
  2. AZELASTINE HYDROCHLORIDE (ACELASTINE HYDROCHLORIDE) [Concomitant]

REACTIONS (4)
  - FALL [None]
  - HYPOAESTHESIA [None]
  - NEUROPATHY PERIPHERAL [None]
  - PERIPHERAL COLDNESS [None]
